FAERS Safety Report 8341627-4 (Version None)
Quarter: 2012Q2

REPORT INFORMATION
  Report Type: 
  Country: None (occurrence: None)
  Receive Date: 20120507
  Receipt Date: 20120427
  Transmission Date: 20120825
  Serious: No
  Sender: FDA-Public Use
  Company Number: US-BAYER-2012-041973

PATIENT
  Sex: Male

DRUGS (2)
  1. NAPROXEN SODIUM [Suspect]
     Indication: ARTHRITIS
     Route: 048
  2. NAPROXEN SODIUM [Suspect]
     Indication: FIBROMYALGIA

REACTIONS (2)
  - FIBROMYALGIA [None]
  - ARTHRITIS [None]
